FAERS Safety Report 7002381-1 (Version None)
Quarter: 2010Q3

REPORT INFORMATION
  Report Type: 
  Country: None (occurrence: None)
  Receive Date: 20100920
  Receipt Date: 20090925
  Transmission Date: 20110219
  Serious: No
  Sender: FDA-Public Use
  Company Number: US-ASTRAZENECA-2009SE15740

PATIENT
  Sex: Male

DRUGS (2)
  1. SEROQUEL [Suspect]
     Indication: ANXIETY
     Route: 048
     Dates: start: 20090901, end: 20090901
  2. SEROQUEL [Suspect]
     Indication: DEPRESSED LEVEL OF CONSCIOUSNESS
     Route: 048
     Dates: start: 20090901, end: 20090901

REACTIONS (3)
  - CONSTIPATION [None]
  - EPISTAXIS [None]
  - NASAL DISCOMFORT [None]
